FAERS Safety Report 8142189-7 (Version None)
Quarter: 2012Q1

REPORT INFORMATION
  Report Type: 
  Country: None (occurrence: None)
  Receive Date: 20120216
  Receipt Date: 20120209
  Transmission Date: 20120608
  Serious: Yes (Hospitalization)
  Sender: FDA-Public Use
  Company Number: US-US-EMD SERONO, INC.-230087K09USA

PATIENT
  Sex: Female
  Weight: 59 kg

DRUGS (5)
  1. CLONAZEPAM [Concomitant]
     Indication: MUSCLE SPASMS
  2. SYNTHROID [Concomitant]
     Indication: HYPOTHYROIDISM
  3. REBIF [Suspect]
     Indication: MULTIPLE SCLEROSIS
     Route: 058
     Dates: start: 20070704
  4. BACLOFEN [Concomitant]
     Indication: MUSCLE SPASMS
  5. DETROL [Concomitant]
     Indication: URINARY INCONTINENCE

REACTIONS (2)
  - PULMONARY ARTERIAL HYPERTENSION [None]
  - INJECTION SITE CELLULITIS [None]
